FAERS Safety Report 10951232 (Version 1)
Quarter: 2015Q1

REPORT INFORMATION
  Report Type: Spontaneous
  Country: US (occurrence: None)
  Receive Date: 20150226
  Receipt Date: 20150226
  Transmission Date: 20150721
  Serious: Yes (Hospitalization, Other)
  Sender: FDA-Public Use
  Company Number: TAP2009Q00170

PATIENT
  Age: 63 Year
  Sex: Female
  Weight: 67.13 kg

DRUGS (6)
  1. METFORMIN [Concomitant]
     Active Substance: METFORMIN HYDROCHLORIDE
  2. UNSPECIFIED BLOOD PRESSURE MEDICATION (ALL OTHER THERAPEUTIC PRODUCTS)?? [Concomitant]
  3. UNSPECIFIED ANTI-DEPRESSANT (ANTIDEPRESSANTS) [Concomitant]
  4. CLARITIN (GLICLAZIDE) [Concomitant]
     Active Substance: GLICLAZIDE
  5. ATIVAN [Concomitant]
     Active Substance: LORAZEPAM
  6. PREVACID [Suspect]
     Active Substance: LANSOPRAZOLE
     Indication: GASTROOESOPHAGEAL REFLUX DISEASE
     Dosage: UNK. 1 IN 1 D, PER ORAL
     Route: 048
     Dates: start: 200707, end: 20090224

REACTIONS (1)
  - Myocardial infarction [None]

NARRATIVE: CASE EVENT DATE: 200902
